FAERS Safety Report 17250470 (Version 3)
Quarter: 2020Q1

REPORT INFORMATION
  Report Type: Report from Study
  Country: BR (occurrence: BR)
  Receive Date: 20200109
  Receipt Date: 20200309
  Transmission Date: 20200409
  Serious: Yes (Disabling, Other)
  Sender: FDA-Public Use
  Company Number: BR-BIOGEN-2020BI00824100

PATIENT
  Age: 44 Year
  Sex: Female

DRUGS (5)
  1. ENALAPRIL [Concomitant]
     Active Substance: ENALAPRIL
     Indication: PRODUCT USED FOR UNKNOWN INDICATION
     Route: 065
  2. TYSABRI [Suspect]
     Active Substance: NATALIZUMAB
     Route: 065
     Dates: start: 201604
  3. TYSABRI [Suspect]
     Active Substance: NATALIZUMAB
     Indication: MULTIPLE SCLEROSIS
     Route: 042
     Dates: start: 201601, end: 201603
  4. GABAPENTIN. [Concomitant]
     Active Substance: GABAPENTIN
     Indication: PAIN
     Route: 065
  5. TECFIDERA [Suspect]
     Active Substance: DIMETHYL FUMARATE
     Indication: MULTIPLE SCLEROSIS
     Route: 048
     Dates: start: 201603, end: 20160318

REACTIONS (10)
  - Tremor [Not Recovered/Not Resolved]
  - Cerebrovascular accident [Unknown]
  - Dysgraphia [Not Recovered/Not Resolved]
  - Diarrhoea [Recovered/Resolved]
  - Gait inability [Recovered/Resolved]
  - Blood cholesterol increased [Not Recovered/Not Resolved]
  - Blindness unilateral [Unknown]
  - Limb injury [Not Recovered/Not Resolved]
  - Diabetes mellitus [Not Recovered/Not Resolved]
  - Anxiety [Recovered/Resolved]

NARRATIVE: CASE EVENT DATE: 201603
